FAERS Safety Report 10330612 (Version 3)
Quarter: 2014Q4

REPORT INFORMATION
  Report Type: Report from Study
  Country: JP (occurrence: JP)
  Receive Date: 20140722
  Receipt Date: 20141030
  Transmission Date: 20150528
  Serious: Yes (Other)
  Sender: FDA-Public Use
  Company Number: JP-AMGEN-JPNCT2013092667

PATIENT
  Age: 74 Year
  Sex: Male
  Weight: 67 kg

DRUGS (16)
  1. FOLIAMIN [Concomitant]
     Active Substance: FOLIC ACID
     Dosage: UNK
     Route: 048
  2. GLAKAY [Concomitant]
     Indication: MYELODYSPLASTIC SYNDROME
     Dosage: UNK
     Route: 048
  3. MUCOSTA [Concomitant]
     Active Substance: REBAMIPIDE
     Dosage: UNK
     Route: 048
  4. TOVIAZ [Concomitant]
     Active Substance: FESOTERODINE FUMARATE
     Dosage: UNK
     Route: 048
  5. PERSANTIN [Concomitant]
     Active Substance: DIPYRIDAMOLE
     Dosage: UNK
     Route: 048
  6. EURAX H [Concomitant]
     Dosage: UNK
     Route: 061
  7. MICARDIS [Concomitant]
     Active Substance: TELMISARTAN
     Dosage: UNK
     Route: 048
  8. VESICARE [Concomitant]
     Active Substance: SOLIFENACIN SUCCINATE
     Dosage: UNK
     Route: 048
  9. ZYLORIC [Concomitant]
     Active Substance: ALLOPURINOL
     Dosage: UNK
     Route: 048
  10. GASLON N [Concomitant]
     Dosage: UNK
     Route: 048
  11. EVIPROSTAT                         /05927901/ [Concomitant]
     Dosage: UNK
     Route: 048
  12. DARBEPOETIN ALFA - KHK [Suspect]
     Active Substance: DARBEPOETIN ALFA
     Indication: NEPHROGENIC ANAEMIA
     Dosage: 180 MUG, QD
     Route: 058
     Dates: start: 20110524
  13. URSO [Concomitant]
     Active Substance: URSODIOL
     Dosage: UNK
     Route: 048
  14. HISHIPHAGENC [Concomitant]
     Dosage: UNK
     Route: 065
  15. PRIMOBOLAN                         /00044802/ [Concomitant]
     Dosage: UNK
     Route: 048
  16. LIVACT                             /00847901/ [Concomitant]
     Dosage: UNK
     Route: 048

REACTIONS (5)
  - Hypertonic bladder [Recovering/Resolving]
  - Human T-cell lymphotropic virus type I infection [Not Recovered/Not Resolved]
  - Hypertension [Recovered/Resolved]
  - Chronic gastritis [Recovered/Resolved]
  - Insomnia [Not Recovered/Not Resolved]

NARRATIVE: CASE EVENT DATE: 20120217
